FAERS Safety Report 18783427 (Version 1)
Quarter: 2021Q1

REPORT INFORMATION
  Report Type: Spontaneous
  Country: US (occurrence: US)
  Receive Date: 20210125
  Receipt Date: 20210125
  Transmission Date: 20210419
  Serious: No
  Sender: FDA-Public Use
  Company Number: US-HORIZON-2021HZN00543

PATIENT
  Age: 5 Year
  Sex: Male

DRUGS (1)
  1. PROCYSBI [Suspect]
     Active Substance: CYSTEAMINE BITARTRATE
     Indication: CYSTINOSIS
     Dosage: 500MG (2 X 25MG CAPSULES WITH 6 X 75MG CAPSULES), G?TUBE, EVERY 12 HOURS
     Route: 050

REACTIONS (2)
  - Vomiting [Recovered/Resolved]
  - Product administration error [Recovered/Resolved]
